FAERS Safety Report 11296371 (Version 1)
Quarter: 2015Q3

REPORT INFORMATION
  Report Type: Spontaneous
  Country: US (occurrence: US)
  Receive Date: 20150722
  Receipt Date: 20150722
  Transmission Date: 20151125
  Serious: No
  Sender: FDA-Public Use
  Company Number: US-ELI_LILLY_AND_COMPANY-US201001001297

PATIENT
  Age: 79 Year
  Sex: Female

DRUGS (1)
  1. EFFIENT [Suspect]
     Active Substance: PRASUGREL HYDROCHLORIDE
     Indication: STENT PLACEMENT
     Dosage: 5 MG, DAILY (1/D)
     Dates: start: 200909, end: 20100106

REACTIONS (4)
  - Gastrointestinal disorder [Unknown]
  - Arthralgia [Unknown]
  - Abdominal pain [Unknown]
  - Back pain [Unknown]
